FAERS Safety Report 19465665 (Version 2)
Quarter: 2021Q2

REPORT INFORMATION
  Report Type: Report from Study
  Country: AR (occurrence: AR)
  Receive Date: 20210626
  Receipt Date: 20210626
  Transmission Date: 20210717
  Serious: Yes (Hospitalization)
  Sender: FDA-Public Use
  Company Number: PHHY2014AR160573

PATIENT
  Age: 46 Year
  Sex: Female

DRUGS (2)
  1. GILENYA [Suspect]
     Active Substance: FINGOLIMOD HYDROCHLORIDE
     Dosage: 1 DF, QD (7 TO 8 YEARS AGO)
     Route: 048
     Dates: start: 20111116, end: 20210515
  2. GILENYA [Suspect]
     Active Substance: FINGOLIMOD HYDROCHLORIDE
     Indication: MULTIPLE SCLEROSIS
     Dosage: UNK
     Route: 065
     Dates: start: 201111

REACTIONS (9)
  - Fatigue [Unknown]
  - Pyrexia [Recovered/Resolved]
  - Amnesia [Not Recovered/Not Resolved]
  - Myalgia [Not Recovered/Not Resolved]
  - COVID-19 [Recovering/Resolving]
  - Fatigue [Not Recovered/Not Resolved]
  - Nasopharyngitis [Unknown]
  - Depressed mood [Unknown]
  - Sneezing [Unknown]

NARRATIVE: CASE EVENT DATE: 2013
